FAERS Safety Report 5021155-4 (Version None)
Quarter: 2006Q2

REPORT INFORMATION
  Report Type: 
  Country: None (occurrence: None)
  Receive Date: 20060608
  Receipt Date: 20060508
  Transmission Date: 20061013
  Serious: Yes (Other)
  Sender: FDA-Public Use
  Company Number: 2006PK01185

PATIENT
  Age: 50 Year
  Sex: Female
  Weight: 173 kg

DRUGS (2)
  1. ZOLADEX [Suspect]
     Indication: BREAST CANCER FEMALE
     Route: 058
     Dates: start: 20040301, end: 20050301
  2. ZOLADEX [Suspect]
     Route: 058
     Dates: start: 20050101

REACTIONS (11)
  - BLOOD PRESSURE INCREASED [None]
  - CHILLS [None]
  - DIZZINESS [None]
  - EAR DISORDER [None]
  - HOT FLUSH [None]
  - HYPERTENSIVE CRISIS [None]
  - LYMPHOEDEMA [None]
  - NAUSEA [None]
  - OVARIAN CYST [None]
  - PALLOR [None]
  - RESTLESSNESS [None]
